FAERS Safety Report 14356082 (Version 2)
Quarter: 2018Q1

REPORT INFORMATION
  Report Type: Other
  Country: DE (occurrence: DE)
  Receive Date: 20180105
  Receipt Date: 20180312
  Transmission Date: 20180509
  Serious: Yes (Other)
  Sender: FDA-Public Use
  Company Number: DE-CELLTRION INC.-2017DE017460

PATIENT

DRUGS (4)
  1. INFLIXIMAB (UNKNOWN) [Suspect]
     Active Substance: INFLIXIMAB
     Indication: COLITIS ULCERATIVE
     Dosage: UNK
     Route: 040
     Dates: start: 2017, end: 2017
  2. INFLIXIMAB (UNKNOWN) [Suspect]
     Active Substance: INFLIXIMAB
     Dosage: UNK
     Route: 040
     Dates: start: 201709, end: 201709
  3. AZATHIOPRIN [Concomitant]
     Active Substance: AZATHIOPRINE
     Dosage: 150 MG
  4. MESALAZIN [Concomitant]
     Active Substance: MESALAMINE
     Dosage: 500 MG

REACTIONS (10)
  - Dermatitis [Not Recovered/Not Resolved]
  - Urine analysis abnormal [Recovering/Resolving]
  - Skin exfoliation [Not Recovered/Not Resolved]
  - Dry skin [Not Recovered/Not Resolved]
  - Lupus-like syndrome [Recovering/Resolving]
  - Butterfly rash [Recovering/Resolving]
  - Skin disorder [Not Recovered/Not Resolved]
  - Erythema [Not Recovered/Not Resolved]
  - Skin burning sensation [Recovering/Resolving]
  - Wrong technique in product usage process [Unknown]

NARRATIVE: CASE EVENT DATE: 2017
